FAERS Safety Report 18841871 (Version 3)
Quarter: 2021Q1

REPORT INFORMATION
  Report Type: Report from Study
  Country: None (occurrence: US)
  Receive Date: 20210204
  Receipt Date: 20210331
  Transmission Date: 20210419
  Serious: Yes (Other)
  Sender: FDA-Public Use
  Company Number: US-ABBVIE-21K-163-3755381-00

PATIENT
  Age: 69 Year
  Sex: Female
  Weight: 86.26 kg

DRUGS (6)
  1. DUEXIS [Concomitant]
     Active Substance: FAMOTIDINE\IBUPROFEN
     Indication: PAIN
  2. METHOTREXATE. [Concomitant]
     Active Substance: METHOTREXATE
     Indication: RHEUMATOID ARTHRITIS
  3. FUROSEMIDE. [Concomitant]
     Active Substance: FUROSEMIDE
     Indication: FLUID RETENTION
  4. RINVOQ [Suspect]
     Active Substance: UPADACITINIB
     Indication: RHEUMATOID ARTHRITIS
     Route: 048
     Dates: start: 2020
  5. ROPINIROLE. [Concomitant]
     Active Substance: ROPINIROLE
     Indication: RESTLESS LEGS SYNDROME
  6. FUROSEMIDE. [Concomitant]
     Active Substance: FUROSEMIDE
     Indication: OEDEMA

REACTIONS (12)
  - Post procedural complication [Unknown]
  - Pelvic deformity [Not Recovered/Not Resolved]
  - Groin pain [Not Recovered/Not Resolved]
  - Limb asymmetry [Unknown]
  - Knee operation [Unknown]
  - Post procedural complication [Not Recovered/Not Resolved]
  - Gait inability [Not Recovered/Not Resolved]
  - Anaemia [Not Recovered/Not Resolved]
  - Joint lock [Recovering/Resolving]
  - Back pain [Unknown]
  - Haemoglobin decreased [Not Recovered/Not Resolved]
  - Soft tissue injury [Recovering/Resolving]

NARRATIVE: CASE EVENT DATE: 202010
